FAERS Safety Report 7275450-9 (Version None)
Quarter: 2011Q1

REPORT INFORMATION
  Report Type: 
  Country: None (occurrence: None)
  Receive Date: 20110204
  Receipt Date: 20110127
  Transmission Date: 20110831
  Serious: Yes (Hospitalization)
  Sender: FDA-Public Use
  Company Number: DE-ABBOTT-11P-062-0702335-00

PATIENT
  Sex: Female

DRUGS (1)
  1. ENANTONE 3.75 MG [Suspect]
     Indication: PRECOCIOUS PUBERTY
     Route: 058

REACTIONS (2)
  - CEREBRAL INFARCTION [None]
  - CAROTID ARTERY DISSECTION [None]
